FAERS Safety Report 22230201 (Version 3)
Quarter: 2024Q1

REPORT INFORMATION
  Report Type: Spontaneous
  Country: JP (occurrence: JP)
  Receive Date: 20230419
  Receipt Date: 20240112
  Transmission Date: 20240410
  Serious: Yes (Death, Other)
  Sender: FDA-Public Use
  Company Number: JP-SAKK-2023SA117468AA

PATIENT
  Age: 15 Year
  Sex: Female
  Weight: 63 kg

DRUGS (8)
  1. SABRIL [Suspect]
     Active Substance: VIGABATRIN
     Indication: Infantile spasms
     Dosage: 1500 MG, BID
     Route: 048
     Dates: start: 20210511, end: 20210606
  2. SABRIL [Suspect]
     Active Substance: VIGABATRIN
     Dosage: 750 MG, BID
     Route: 048
     Dates: start: 20210607, end: 20211129
  3. SABRIL [Suspect]
     Active Substance: VIGABATRIN
     Dosage: 1000 MG, BID
     Route: 048
     Dates: start: 20211130, end: 20220821
  4. CLOBAZAM [Concomitant]
     Active Substance: CLOBAZAM
     Indication: Infantile spasms
     Dosage: DAILY DOSE: 20 MG
     Route: 048
     Dates: start: 2008
  5. ZONISAMIDE [Concomitant]
     Active Substance: ZONISAMIDE
     Indication: Infantile spasms
     Dosage: DAILY DOSE: 600 MG
     Route: 048
     Dates: start: 2006
  6. PHENYTOIN [Concomitant]
     Active Substance: PHENYTOIN
     Indication: Infantile spasms
     Dosage: DAILY DOSE: 170 MG
     Route: 048
     Dates: start: 2020
  7. PHENOBARBITAL [Concomitant]
     Active Substance: PHENOBARBITAL
     Indication: Infantile spasms
     Dosage: DAILY DOSE: 50 MG
     Route: 048
     Dates: start: 2020
  8. LEVETIRACETAM [Concomitant]
     Active Substance: LEVETIRACETAM
     Indication: Infantile spasms
     Dosage: DAILY DOSE: 1500 MG
     Route: 048
     Dates: start: 2019

REACTIONS (2)
  - Cardio-respiratory arrest [Fatal]
  - Intentional self-injury [Recovering/Resolving]

NARRATIVE: CASE EVENT DATE: 20210501
